FAERS Safety Report 9436702 (Version 3)
Quarter: 2013Q4

REPORT INFORMATION
  Report Type: Spontaneous
  Country: US (occurrence: US)
  Receive Date: 20130802
  Receipt Date: 20131220
  Transmission Date: 20140711
  Serious: Yes (Other)
  Sender: FDA-Public Use
  Company Number: US-AMGEN-USASP2013053459

PATIENT
  Age: 64 Year
  Sex: Female
  Weight: 73.47 kg

DRUGS (21)
  1. PROLIA [Suspect]
     Indication: OSTEOPOROSIS POSTMENOPAUSAL
     Dosage: 60 MG, Q6MO
     Route: 058
     Dates: start: 20121213
  2. PROLIA [Suspect]
     Dosage: UNK
     Route: 065
     Dates: start: 20130711
  3. BENADRYL                           /00000402/ [Concomitant]
     Dosage: UNK
     Dates: start: 20120827
  4. CALCIUM [Concomitant]
  5. COLOSTRUM [Concomitant]
     Dosage: UNK
     Dates: start: 20120827
  6. CYCLOBENZAPRINE [Concomitant]
     Dosage: UNK
     Dates: start: 20120827
  7. CYTOMEL [Concomitant]
     Dosage: UNK
     Dates: start: 20120827
  8. DOXEPIN [Concomitant]
     Dosage: UNK
     Dates: start: 20120827
  9. ESTRADIOL [Concomitant]
     Dosage: UNK
     Dates: start: 20120827
  10. GASTROCROM [Concomitant]
     Dosage: UNK
     Dates: start: 20120827
  11. GLUTAMINE [Concomitant]
     Dosage: UNK
     Dates: start: 20120827
  12. METHIONINE [Concomitant]
     Dosage: UNK
     Dates: start: 20120827
  13. LEVOXYL [Concomitant]
     Dosage: UNK
     Dates: start: 20120827
  14. MELATONIN [Concomitant]
     Dosage: UNK
     Dates: start: 20120827
  15. MULTIVITAMIN                       /00097801/ [Concomitant]
     Dosage: UNK
     Dates: start: 20120827
  16. NORTRIPTYLINE [Concomitant]
     Dosage: UNK
     Dates: start: 20120827
  17. PANCREATIN [Concomitant]
     Dosage: UNK
     Dates: start: 20120827
  18. SAM-E [Concomitant]
     Dosage: UNK
     Dates: start: 20120827
  19. SKELAXIN                           /00611501/ [Concomitant]
     Dosage: UNK
     Dates: start: 20120827
  20. TRIAMCINOLONE [Concomitant]
     Dosage: UNK
     Dates: start: 20120827
  21. ZYRTEC [Concomitant]
     Dosage: UNK
     Dates: start: 20120827

REACTIONS (9)
  - Infection [Unknown]
  - Immune system disorder [Unknown]
  - Neck pain [Recovered/Resolved]
  - Muscle spasms [Not Recovered/Not Resolved]
  - Pain [Unknown]
  - Chondropathy [Unknown]
  - Bone disorder [Unknown]
  - Fatigue [Recovered/Resolved]
  - Upper respiratory tract infection [Unknown]
